FAERS Safety Report 24986600 (Version 2)
Quarter: 2025Q2

REPORT INFORMATION
  Report Type: Report from Study
  Country: FR (occurrence: FR)
  Receive Date: 20250219
  Receipt Date: 20250508
  Transmission Date: 20250717
  Serious: Yes (Hospitalization)
  Sender: MYLAN
  Company Number: FR-ROCHE-10000196169

PATIENT
  Age: 81 Year
  Sex: Female
  Weight: 58 kg

DRUGS (140)
  1. GEMCITABINE [Suspect]
     Active Substance: GEMCITABINE
     Indication: Diffuse large B-cell lymphoma refractory
     Dosage: 1620 MILLIGRAM, BIWEEKLY (C1-4, D1 + D15)
     Dates: start: 20241219
  2. GEMCITABINE [Suspect]
     Active Substance: GEMCITABINE
     Indication: Diffuse large B-cell lymphoma recurrent
     Dosage: 1620 MILLIGRAM, BIWEEKLY (C1-4, D1 + D15)
     Dates: start: 20241219
  3. GEMCITABINE [Suspect]
     Active Substance: GEMCITABINE
     Dosage: 1620 MILLIGRAM, BIWEEKLY (C1-4, D1 + D15)
     Route: 042
     Dates: start: 20241219
  4. GEMCITABINE [Suspect]
     Active Substance: GEMCITABINE
     Dosage: 1620 MILLIGRAM, BIWEEKLY (C1-4, D1 + D15)
     Route: 042
     Dates: start: 20241219
  5. GEMCITABINE [Suspect]
     Active Substance: GEMCITABINE
     Dosage: 1620 MILLIGRAM, BIWEEKLY (C1-4, D1 + D15, EVERY 2 WEEKS)
     Dates: start: 20250203
  6. GEMCITABINE [Suspect]
     Active Substance: GEMCITABINE
     Dosage: 1620 MILLIGRAM, BIWEEKLY (C1-4, D1 + D15, EVERY 2 WEEKS)
     Dates: start: 20250203
  7. GEMCITABINE [Suspect]
     Active Substance: GEMCITABINE
     Dosage: 1620 MILLIGRAM, BIWEEKLY (C1-4, D1 + D15, EVERY 2 WEEKS)
     Route: 042
     Dates: start: 20250203
  8. GEMCITABINE [Suspect]
     Active Substance: GEMCITABINE
     Dosage: 1620 MILLIGRAM, BIWEEKLY (C1-4, D1 + D15, EVERY 2 WEEKS)
     Route: 042
     Dates: start: 20250203
  9. OXALIPLATIN [Suspect]
     Active Substance: OXALIPLATIN
     Indication: Diffuse large B-cell lymphoma refractory
     Dosage: 162 MILLIGRAM, BIWEEKLY (C1-4, D1 + D15)
     Route: 042
     Dates: start: 20241219
  10. OXALIPLATIN [Suspect]
     Active Substance: OXALIPLATIN
     Indication: Diffuse large B-cell lymphoma recurrent
     Dosage: 162 MILLIGRAM, BIWEEKLY (C1-4, D1 + D15)
     Dates: start: 20241219
  11. OXALIPLATIN [Suspect]
     Active Substance: OXALIPLATIN
     Dosage: 162 MILLIGRAM, BIWEEKLY (C1-4, D1 + D15)
     Dates: start: 20241219
  12. OXALIPLATIN [Suspect]
     Active Substance: OXALIPLATIN
     Dosage: 162 MILLIGRAM, BIWEEKLY (C1-4, D1 + D15)
     Route: 042
     Dates: start: 20241219
  13. OXALIPLATIN [Suspect]
     Active Substance: OXALIPLATIN
     Dosage: 162 MILLIGRAM, BIWEEKLY (C1-4, D1 + D15, EVERY 2 WEEKS)
     Route: 042
     Dates: start: 20250203
  14. OXALIPLATIN [Suspect]
     Active Substance: OXALIPLATIN
     Dosage: 162 MILLIGRAM, BIWEEKLY (C1-4, D1 + D15, EVERY 2 WEEKS)
     Dates: start: 20250203
  15. OXALIPLATIN [Suspect]
     Active Substance: OXALIPLATIN
     Dosage: 162 MILLIGRAM, BIWEEKLY (C1-4, D1 + D15, EVERY 2 WEEKS)
     Dates: start: 20250203
  16. OXALIPLATIN [Suspect]
     Active Substance: OXALIPLATIN
     Dosage: 162 MILLIGRAM, BIWEEKLY (C1-4, D1 + D15, EVERY 2 WEEKS)
     Route: 042
     Dates: start: 20250203
  17. RITUXIMAB [Suspect]
     Active Substance: RITUXIMAB
     Indication: Diffuse large B-cell lymphoma refractory
     Dosage: 610 MILLIGRAM, BIWEEKLY (C1-4, D1 + D15)
     Route: 042
     Dates: start: 20241219
  18. RITUXIMAB [Suspect]
     Active Substance: RITUXIMAB
     Indication: Diffuse large B-cell lymphoma recurrent
     Dosage: 610 MILLIGRAM, BIWEEKLY (C1-4, D1 + D15)
     Dates: start: 20241219
  19. RITUXIMAB [Suspect]
     Active Substance: RITUXIMAB
     Dosage: 610 MILLIGRAM, BIWEEKLY (C1-4, D1 + D15)
     Dates: start: 20241219
  20. RITUXIMAB [Suspect]
     Active Substance: RITUXIMAB
     Dosage: 610 MILLIGRAM, BIWEEKLY (C1-4, D1 + D15)
     Route: 042
     Dates: start: 20241219
  21. RITUXIMAB [Suspect]
     Active Substance: RITUXIMAB
     Dosage: 610 MILLIGRAM, BIWEEKLY (C1-4, D1 + D15, EVERY 2 WEEKS)
     Route: 042
     Dates: start: 20250203
  22. RITUXIMAB [Suspect]
     Active Substance: RITUXIMAB
     Dosage: 610 MILLIGRAM, BIWEEKLY (C1-4, D1 + D15, EVERY 2 WEEKS)
     Dates: start: 20250203
  23. RITUXIMAB [Suspect]
     Active Substance: RITUXIMAB
     Dosage: 610 MILLIGRAM, BIWEEKLY (C1-4, D1 + D15, EVERY 2 WEEKS)
     Dates: start: 20250203
  24. RITUXIMAB [Suspect]
     Active Substance: RITUXIMAB
     Dosage: 610 MILLIGRAM, BIWEEKLY (C1-4, D1 + D15, EVERY 2 WEEKS)
     Route: 042
     Dates: start: 20250203
  25. EPCORITAMAB [4]
     Active Substance: EPCORITAMAB
     Indication: Diffuse large B-cell lymphoma recurrent
  26. EPCORITAMAB [4]
     Active Substance: EPCORITAMAB
     Indication: Diffuse large B-cell lymphoma refractory
     Route: 065
  27. EPCORITAMAB [None]
     Active Substance: EPCORITAMAB
     Route: 065
  28. EPCORITAMAB [None]
     Active Substance: EPCORITAMAB
  29. PANTOPRAZOLE [Concomitant]
     Active Substance: PANTOPRAZOLE
     Indication: Prophylaxis
     Dosage: 20 MILLIGRAM, QD
  30. PANTOPRAZOLE [Concomitant]
     Active Substance: PANTOPRAZOLE
     Indication: Antacid therapy
     Dosage: 20 MILLIGRAM, QD
     Route: 065
  31. PANTOPRAZOLE [Concomitant]
     Active Substance: PANTOPRAZOLE
     Dosage: 20 MILLIGRAM, QD
     Route: 065
  32. PANTOPRAZOLE [Concomitant]
     Active Substance: PANTOPRAZOLE
     Dosage: 20 MILLIGRAM, QD
  33. QUETIAPINE FUMARATE [Concomitant]
     Active Substance: QUETIAPINE FUMARATE
     Indication: Depression
     Dosage: 50 MILLIGRAM, QD
  34. QUETIAPINE FUMARATE [Concomitant]
     Active Substance: QUETIAPINE FUMARATE
     Dosage: 50 MILLIGRAM, QD
     Route: 065
  35. QUETIAPINE FUMARATE [Concomitant]
     Active Substance: QUETIAPINE FUMARATE
     Dosage: 50 MILLIGRAM, QD
     Route: 065
  36. QUETIAPINE FUMARATE [Concomitant]
     Active Substance: QUETIAPINE FUMARATE
     Dosage: 50 MILLIGRAM, QD
  37. VALPROMIDE [Concomitant]
     Active Substance: VALPROMIDE
     Indication: Depression
     Dosage: 300 MILLIGRAM, TID (0.33 DAY)
  38. VALPROMIDE [Concomitant]
     Active Substance: VALPROMIDE
     Dosage: 300 MILLIGRAM, TID (0.33 DAY)
     Route: 065
  39. VALPROMIDE [Concomitant]
     Active Substance: VALPROMIDE
     Dosage: 300 MILLIGRAM, TID (0.33 DAY)
     Route: 065
  40. VALPROMIDE [Concomitant]
     Active Substance: VALPROMIDE
     Dosage: 300 MILLIGRAM, TID (0.33 DAY)
  41. VENLAFAXINE [Concomitant]
     Active Substance: VENLAFAXINE HYDROCHLORIDE
     Indication: Depression
     Dosage: 37.5 MILLIGRAM, QD
     Route: 065
  42. VENLAFAXINE [Concomitant]
     Active Substance: VENLAFAXINE HYDROCHLORIDE
     Dosage: 37.5 MILLIGRAM, QD
  43. VENLAFAXINE [Concomitant]
     Active Substance: VENLAFAXINE HYDROCHLORIDE
     Dosage: 37.5 MILLIGRAM, QD
  44. VENLAFAXINE [Concomitant]
     Active Substance: VENLAFAXINE HYDROCHLORIDE
     Dosage: 37.5 MILLIGRAM, QD
     Route: 065
  45. VENLAFAXINE [Concomitant]
     Active Substance: VENLAFAXINE HYDROCHLORIDE
     Dosage: 75 MILLIGRAM, QD (75 MG, EVERY 1 DAYS)
     Route: 065
     Dates: start: 20241224
  46. VENLAFAXINE [Concomitant]
     Active Substance: VENLAFAXINE HYDROCHLORIDE
     Dosage: 75 MILLIGRAM, QD (75 MG, EVERY 1 DAYS)
     Dates: start: 20241224
  47. VENLAFAXINE [Concomitant]
     Active Substance: VENLAFAXINE HYDROCHLORIDE
     Dosage: 75 MILLIGRAM, QD (75 MG, EVERY 1 DAYS)
     Dates: start: 20241224
  48. VENLAFAXINE [Concomitant]
     Active Substance: VENLAFAXINE HYDROCHLORIDE
     Dosage: 75 MILLIGRAM, QD (75 MG, EVERY 1 DAYS)
     Route: 065
     Dates: start: 20241224
  49. POLYETHYLENE GLYCOLS [Concomitant]
     Active Substance: POLYETHYLENE GLYCOLS
     Indication: Constipation
     Dosage: 2 DOSAGE FORM, QD (BAGS)
     Route: 065
  50. POLYETHYLENE GLYCOLS [Concomitant]
     Active Substance: POLYETHYLENE GLYCOLS
     Dosage: 2 DOSAGE FORM, QD (BAGS)
  51. POLYETHYLENE GLYCOLS [Concomitant]
     Active Substance: POLYETHYLENE GLYCOLS
     Dosage: 2 DOSAGE FORM, QD (BAGS)
  52. POLYETHYLENE GLYCOLS [Concomitant]
     Active Substance: POLYETHYLENE GLYCOLS
     Dosage: 2 DOSAGE FORM, QD (BAGS)
     Route: 065
  53. POLYETHYLENE GLYCOLS [Concomitant]
     Active Substance: POLYETHYLENE GLYCOLS
     Dosage: 1 DOSAGE FORM, QD (BAGS)
     Route: 065
     Dates: start: 20241211
  54. POLYETHYLENE GLYCOLS [Concomitant]
     Active Substance: POLYETHYLENE GLYCOLS
     Dosage: 1 DOSAGE FORM, QD (BAGS)
     Dates: start: 20241211
  55. POLYETHYLENE GLYCOLS [Concomitant]
     Active Substance: POLYETHYLENE GLYCOLS
     Dosage: 1 DOSAGE FORM, QD (BAGS)
     Dates: start: 20241211
  56. POLYETHYLENE GLYCOLS [Concomitant]
     Active Substance: POLYETHYLENE GLYCOLS
     Dosage: 1 DOSAGE FORM, QD (BAGS)
     Route: 065
     Dates: start: 20241211
  57. LEVOTHYROXINE [Concomitant]
     Active Substance: LEVOTHYROXINE
     Indication: Thyroidectomy
     Dosage: 75 MILLIGRAM, QD
     Route: 065
  58. LEVOTHYROXINE [Concomitant]
     Active Substance: LEVOTHYROXINE
     Dosage: 75 MILLIGRAM, QD
  59. LEVOTHYROXINE [Concomitant]
     Active Substance: LEVOTHYROXINE
     Dosage: 75 MILLIGRAM, QD
  60. LEVOTHYROXINE [Concomitant]
     Active Substance: LEVOTHYROXINE
     Dosage: 75 MILLIGRAM, QD
     Route: 065
  61. LEVOTHYROXINE [Concomitant]
     Active Substance: LEVOTHYROXINE
     Dosage: 75 MILLIGRAM, QD
     Route: 065
     Dates: start: 20250102
  62. LEVOTHYROXINE [Concomitant]
     Active Substance: LEVOTHYROXINE
     Dosage: 75 MILLIGRAM, QD
     Dates: start: 20250102
  63. LEVOTHYROXINE [Concomitant]
     Active Substance: LEVOTHYROXINE
     Dosage: 75 MILLIGRAM, QD
     Dates: start: 20250102
  64. LEVOTHYROXINE [Concomitant]
     Active Substance: LEVOTHYROXINE
     Dosage: 75 MILLIGRAM, QD
     Route: 065
     Dates: start: 20250102
  65. OXYCODONE [Concomitant]
     Active Substance: OXYCODONE
     Indication: Pain
     Dosage: 5 MILLIGRAM, Q4H
  66. OXYCODONE [Concomitant]
     Active Substance: OXYCODONE
     Dosage: 5 MILLIGRAM, Q4H
     Route: 065
  67. OXYCODONE [Concomitant]
     Active Substance: OXYCODONE
     Dosage: 5 MILLIGRAM, Q4H
     Route: 065
  68. OXYCODONE [Concomitant]
     Active Substance: OXYCODONE
     Dosage: 5 MILLIGRAM, Q4H
  69. GABAPENTIN [Concomitant]
     Active Substance: GABAPENTIN
     Indication: Pain
     Dosage: 100 MILLIGRAM, Q3D
     Route: 065
  70. GABAPENTIN [Concomitant]
     Active Substance: GABAPENTIN
     Indication: Spinal cord infection
     Dosage: 100 MILLIGRAM, Q3D
  71. GABAPENTIN [Concomitant]
     Active Substance: GABAPENTIN
     Indication: Peripheral sensory neuropathy
     Dosage: 100 MILLIGRAM, Q3D
  72. GABAPENTIN [Concomitant]
     Active Substance: GABAPENTIN
     Dosage: 100 MILLIGRAM, Q3D
     Route: 065
  73. GABAPENTIN [Concomitant]
     Active Substance: GABAPENTIN
     Dosage: 500 MILLIGRAM, BID
     Route: 065
     Dates: start: 20250106
  74. GABAPENTIN [Concomitant]
     Active Substance: GABAPENTIN
     Dosage: 500 MILLIGRAM, BID
     Dates: start: 20250106
  75. GABAPENTIN [Concomitant]
     Active Substance: GABAPENTIN
     Dosage: 500 MILLIGRAM, BID
     Dates: start: 20250106
  76. GABAPENTIN [Concomitant]
     Active Substance: GABAPENTIN
     Dosage: 500 MILLIGRAM, BID
     Route: 065
     Dates: start: 20250106
  77. THIOCOLCHICOSIDE [Concomitant]
     Active Substance: THIOCOLCHICOSIDE
     Indication: Pain
     Dosage: 8 MILLIGRAM, BID (0.5 DAY)
  78. THIOCOLCHICOSIDE [Concomitant]
     Active Substance: THIOCOLCHICOSIDE
     Dosage: 8 MILLIGRAM, BID (0.5 DAY)
     Route: 065
  79. THIOCOLCHICOSIDE [Concomitant]
     Active Substance: THIOCOLCHICOSIDE
     Dosage: 8 MILLIGRAM, BID (0.5 DAY)
     Route: 065
  80. THIOCOLCHICOSIDE [Concomitant]
     Active Substance: THIOCOLCHICOSIDE
     Dosage: 8 MILLIGRAM, BID (0.5 DAY)
  81. CHOLECALCIFEROL [Concomitant]
     Active Substance: CHOLECALCIFEROL
     Indication: Vitamin D deficiency
  82. CHOLECALCIFEROL [Concomitant]
     Active Substance: CHOLECALCIFEROL
     Route: 065
  83. CHOLECALCIFEROL [Concomitant]
     Active Substance: CHOLECALCIFEROL
     Route: 065
  84. CHOLECALCIFEROL [Concomitant]
     Active Substance: CHOLECALCIFEROL
  85. OXAZEPAM [Concomitant]
     Active Substance: OXAZEPAM
     Indication: Depression
     Dosage: 10 MILLIGRAM, Q6H
  86. OXAZEPAM [Concomitant]
     Active Substance: OXAZEPAM
     Dosage: 10 MILLIGRAM, Q6H
     Route: 065
  87. OXAZEPAM [Concomitant]
     Active Substance: OXAZEPAM
     Dosage: 10 MILLIGRAM, Q6H
     Route: 065
  88. OXAZEPAM [Concomitant]
     Active Substance: OXAZEPAM
     Dosage: 10 MILLIGRAM, Q6H
  89. PREDNISOLONE [Concomitant]
     Active Substance: PREDNISOLONE
     Indication: Spinal cord infection
     Dosage: 5 MILLIGRAM, QD (5 MG, EVERY 1 DAYS)
     Dates: start: 20250110
  90. PREDNISOLONE [Concomitant]
     Active Substance: PREDNISOLONE
     Indication: Pain
     Dosage: 5 MILLIGRAM, QD (5 MG, EVERY 1 DAYS)
     Route: 065
     Dates: start: 20250110
  91. PREDNISOLONE [Concomitant]
     Active Substance: PREDNISOLONE
     Dosage: 5 MILLIGRAM, QD (5 MG, EVERY 1 DAYS)
     Route: 065
     Dates: start: 20250110
  92. PREDNISOLONE [Concomitant]
     Active Substance: PREDNISOLONE
     Dosage: 5 MILLIGRAM, QD (5 MG, EVERY 1 DAYS)
     Dates: start: 20250110
  93. ALPRAZOLAM [Concomitant]
     Active Substance: ALPRAZOLAM
     Indication: Anxiety
  94. ALPRAZOLAM [Concomitant]
     Active Substance: ALPRAZOLAM
     Route: 065
  95. ALPRAZOLAM [Concomitant]
     Active Substance: ALPRAZOLAM
     Route: 065
  96. ALPRAZOLAM [Concomitant]
     Active Substance: ALPRAZOLAM
  97. NALOXEGOL [Concomitant]
     Active Substance: NALOXEGOL
     Indication: Constipation prophylaxis
  98. NALOXEGOL [Concomitant]
     Active Substance: NALOXEGOL
     Route: 065
  99. NALOXEGOL [Concomitant]
     Active Substance: NALOXEGOL
     Route: 065
  100. NALOXEGOL [Concomitant]
     Active Substance: NALOXEGOL
  101. CHOLECALCIFEROL [Concomitant]
     Active Substance: CHOLECALCIFEROL
     Indication: Vitamin D deficiency
     Dosage: 5000 INTERNATIONAL UNIT, QW
     Dates: start: 20241216
  102. CHOLECALCIFEROL [Concomitant]
     Active Substance: CHOLECALCIFEROL
     Dosage: 5000 INTERNATIONAL UNIT, QW
     Route: 065
     Dates: start: 20241216
  103. CHOLECALCIFEROL [Concomitant]
     Active Substance: CHOLECALCIFEROL
     Dosage: 5000 INTERNATIONAL UNIT, QW
     Route: 065
     Dates: start: 20241216
  104. CHOLECALCIFEROL [Concomitant]
     Active Substance: CHOLECALCIFEROL
     Dosage: 5000 INTERNATIONAL UNIT, QW
     Dates: start: 20241216
  105. PANTOPRAZOLE SODIUM [Concomitant]
     Active Substance: PANTOPRAZOLE SODIUM
     Indication: Ulcer
     Dosage: 40 MILLIGRAM, QD
     Dates: start: 20241224
  106. PANTOPRAZOLE SODIUM [Concomitant]
     Active Substance: PANTOPRAZOLE SODIUM
     Dosage: 40 MILLIGRAM, QD
     Route: 065
     Dates: start: 20241224
  107. PANTOPRAZOLE SODIUM [Concomitant]
     Active Substance: PANTOPRAZOLE SODIUM
     Dosage: 40 MILLIGRAM, QD
     Route: 065
     Dates: start: 20241224
  108. PANTOPRAZOLE SODIUM [Concomitant]
     Active Substance: PANTOPRAZOLE SODIUM
     Dosage: 40 MILLIGRAM, QD
     Dates: start: 20241224
  109. SKENAN [Concomitant]
     Active Substance: MORPHINE SULFATE
     Indication: Pain
     Dosage: 10 MILLIGRAM, BID
     Dates: start: 20241216
  110. SKENAN [Concomitant]
     Active Substance: MORPHINE SULFATE
     Indication: Spinal cord infection
     Dosage: 10 MILLIGRAM, BID
     Route: 065
     Dates: start: 20241216
  111. SKENAN [Concomitant]
     Active Substance: MORPHINE SULFATE
     Dosage: 10 MILLIGRAM, BID
     Route: 065
     Dates: start: 20241216
  112. SKENAN [Concomitant]
     Active Substance: MORPHINE SULFATE
     Dosage: 10 MILLIGRAM, BID
     Dates: start: 20241216
  113. ACETAMINOPHEN [Concomitant]
     Active Substance: ACETAMINOPHEN
     Indication: Spinal cord infection
  114. ACETAMINOPHEN [Concomitant]
     Active Substance: ACETAMINOPHEN
     Indication: Pain
     Route: 065
  115. ACETAMINOPHEN [Concomitant]
     Active Substance: ACETAMINOPHEN
     Route: 065
  116. ACETAMINOPHEN [Concomitant]
     Active Substance: ACETAMINOPHEN
  117. MORPHINE SULFATE [Concomitant]
     Active Substance: MORPHINE SULFATE
     Indication: Spinal cord infection
  118. MORPHINE SULFATE [Concomitant]
     Active Substance: MORPHINE SULFATE
     Route: 065
  119. MORPHINE SULFATE [Concomitant]
     Active Substance: MORPHINE SULFATE
     Route: 065
  120. MORPHINE SULFATE [Concomitant]
     Active Substance: MORPHINE SULFATE
  121. FILGRASTIM [Concomitant]
     Active Substance: FILGRASTIM
     Indication: Prophylaxis
  122. FILGRASTIM [Concomitant]
     Active Substance: FILGRASTIM
     Route: 065
  123. FILGRASTIM [Concomitant]
     Active Substance: FILGRASTIM
     Route: 065
  124. FILGRASTIM [Concomitant]
     Active Substance: FILGRASTIM
  125. METOCLOPRAMIDE [Concomitant]
     Active Substance: METOCLOPRAMIDE
     Indication: Prophylaxis of nausea and vomiting
  126. METOCLOPRAMIDE [Concomitant]
     Active Substance: METOCLOPRAMIDE
     Route: 065
  127. METOCLOPRAMIDE [Concomitant]
     Active Substance: METOCLOPRAMIDE
     Route: 065
  128. METOCLOPRAMIDE [Concomitant]
     Active Substance: METOCLOPRAMIDE
  129. Bicalan [Concomitant]
     Indication: Infection prophylaxis
     Dosage: UNK, TID (1 BOLUS, 3/DAYS)
     Dates: start: 20241224
  130. Bicalan [Concomitant]
     Dosage: UNK, TID (1 BOLUS, 3/DAYS)
     Route: 065
     Dates: start: 20241224
  131. Bicalan [Concomitant]
     Dosage: UNK, TID (1 BOLUS, 3/DAYS)
     Route: 065
     Dates: start: 20241224
  132. Bicalan [Concomitant]
     Dosage: UNK, TID (1 BOLUS, 3/DAYS)
     Dates: start: 20241224
  133. VALACYCLOVIR HYDROCHLORIDE [Concomitant]
     Active Substance: VALACYCLOVIR HYDROCHLORIDE
     Indication: Infection prophylaxis
     Dosage: 500 MILLIGRAM, BID
     Dates: start: 20241224
  134. VALACYCLOVIR HYDROCHLORIDE [Concomitant]
     Active Substance: VALACYCLOVIR HYDROCHLORIDE
     Dosage: 500 MILLIGRAM, BID
     Route: 065
     Dates: start: 20241224
  135. VALACYCLOVIR HYDROCHLORIDE [Concomitant]
     Active Substance: VALACYCLOVIR HYDROCHLORIDE
     Dosage: 500 MILLIGRAM, BID
     Route: 065
     Dates: start: 20241224
  136. VALACYCLOVIR HYDROCHLORIDE [Concomitant]
     Active Substance: VALACYCLOVIR HYDROCHLORIDE
     Dosage: 500 MILLIGRAM, BID
     Dates: start: 20241224
  137. RETACRIT [Concomitant]
     Active Substance: EPOETIN ALFA-EPBX
     Indication: Anaemia
     Dosage: 30000 INTERNATIONAL UNIT, QW
     Dates: start: 20250102
  138. RETACRIT [Concomitant]
     Active Substance: EPOETIN ALFA-EPBX
     Dosage: 30000 INTERNATIONAL UNIT, QW
     Route: 065
     Dates: start: 20250102
  139. RETACRIT [Concomitant]
     Active Substance: EPOETIN ALFA-EPBX
     Dosage: 30000 INTERNATIONAL UNIT, QW
     Route: 065
     Dates: start: 20250102
  140. RETACRIT [Concomitant]
     Active Substance: EPOETIN ALFA-EPBX
     Dosage: 30000 INTERNATIONAL UNIT, QW
     Dates: start: 20250102

REACTIONS (2)
  - Lung disorder [Not Recovered/Not Resolved]
  - Pneumonia [Recovered/Resolved]

NARRATIVE: CASE EVENT DATE: 20250111
